FAERS Safety Report 13698411 (Version 1)
Quarter: 2017Q2

REPORT INFORMATION
  Report Type: Spontaneous
  Country: US (occurrence: US)
  Receive Date: 20170628
  Receipt Date: 20170628
  Transmission Date: 20170830
  Serious: No
  Sender: FDA-Public Use
  Company Number: US-BAYER-2017-112311

PATIENT
  Age: 72 Year
  Sex: Male
  Weight: 86.98 kg

DRUGS (4)
  1. LISINOPRIL. [Concomitant]
     Active Substance: LISINOPRIL
  2. ALEVE PM [Suspect]
     Active Substance: DIPHENHYDRAMINE HYDROCHLORIDE\NAPROXEN SODIUM
     Indication: INSOMNIA
     Dosage: 1 DF, IRR
     Route: 048
     Dates: end: 201706
  3. TIMOPTIC [Concomitant]
     Active Substance: TIMOLOL MALEATE
  4. ALEVE PM [Suspect]
     Active Substance: DIPHENHYDRAMINE HYDROCHLORIDE\NAPROXEN SODIUM
     Indication: INSOMNIA
     Dosage: 0.5 DF, IRR
     Route: 048
     Dates: end: 201706

REACTIONS (7)
  - Product use issue [Unknown]
  - Drug effect delayed [Unknown]
  - Weight decreased [None]
  - Feeling abnormal [None]
  - Wrong technique in product usage process [Unknown]
  - Product use in unapproved indication [Unknown]
  - Drug resistance [Unknown]

NARRATIVE: CASE EVENT DATE: 2017
